FAERS Safety Report 5190323-3 (Version None)
Quarter: 2006Q4

REPORT INFORMATION
  Report Type: 
  Country: None (occurrence: None)
  Receive Date: 20061222
  Receipt Date: 20060714
  Transmission Date: 20070319
  Serious: No
  Sender: FDA-Public Use
  Company Number: US-AMGEN-KDL186344

PATIENT
  Sex: Male

DRUGS (6)
  1. ARANESP [Suspect]
     Indication: MYELODYSPLASTIC SYNDROME
     Route: 065
  2. EXJADE [Concomitant]
     Route: 065
  3. UNSPECIFIED OPHTHALMIC PREPARATION [Concomitant]
  4. PROSOM [Concomitant]
     Route: 065
  5. TYLENOL [Concomitant]
     Route: 048
  6. VITAMIN B6 [Concomitant]
     Route: 065

REACTIONS (1)
  - FATIGUE [None]
